FAERS Safety Report 20960535 (Version 2)
Quarter: 2022Q2

REPORT INFORMATION
  Report Type: Spontaneous
  Country: IE (occurrence: IE)
  Receive Date: 20220615
  Receipt Date: 20220629
  Transmission Date: 20220720
  Serious: Yes (Other)
  Sender: FDA-Public Use
  Company Number: IE-BECTON DICKINSON-IE-BD-22-000190

PATIENT
  Age: 60 Year
  Sex: Female

DRUGS (1)
  1. CHLORAPREP WITH TINT [Suspect]
     Active Substance: CHLORHEXIDINE GLUCONATE\ISOPROPYL ALCOHOL
     Indication: Infection prophylaxis
     Dosage: ONE FOR EACH INCISION SITE
     Route: 065

REACTIONS (4)
  - Thermal burn [Recovering/Resolving]
  - Accident [Unknown]
  - Product caught fire [Unknown]
  - Product use issue [Unknown]

NARRATIVE: CASE EVENT DATE: 20220517
